FAERS Safety Report 15011291 (Version 1)
Quarter: 2018Q2

REPORT INFORMATION
  Report Type: Other
  Country: None (occurrence: US)
  Receive Date: 20180614
  Receipt Date: 20180614
  Transmission Date: 20180711
  Serious: Yes (Hospitalization, Other)
  Sender: FDA-Public Use
  Company Number: US-MEDAC PHARMA, INC.-2049414

PATIENT
  Age: 75 Year
  Sex: Female

DRUGS (2)
  1. METHOTREXATE. [Suspect]
     Active Substance: METHOTREXATE
     Indication: CONJUNCTIVAL DISORDER
  2. PREDNISONE. [Concomitant]
     Active Substance: PREDNISONE

REACTIONS (8)
  - Rash [Unknown]
  - Anaemia [Unknown]
  - Alopecia [Unknown]
  - Nausea [Unknown]
  - Abdominal pain [Unknown]
  - Pneumonia [Unknown]
  - Urinary tract infection [Unknown]
  - Decreased appetite [Unknown]
